FAERS Safety Report 9492383 (Version 1)
Quarter: 2013Q3

REPORT INFORMATION
  Report Type: Spontaneous
  Country: FR (occurrence: FR)
  Receive Date: 20130830
  Receipt Date: 20130830
  Transmission Date: 20140515
  Serious: Yes (Other)
  Sender: FDA-Public Use
  Company Number: FR-ALLERGAN-1312992US

PATIENT
  Age: 55 Year
  Sex: Female

DRUGS (5)
  1. GANFORT [Suspect]
     Indication: GLAUCOMA
     Dosage: UNK
     Route: 047
  2. XALACOM [Suspect]
     Indication: GLAUCOMA
     Dosage: UNK
     Route: 047
     Dates: start: 2011
  3. COMBIGAN [Concomitant]
     Indication: PRODUCT USED FOR UNKNOWN INDICATION
     Dosage: UNK
     Route: 047
  4. TIMOLOL [Concomitant]
     Indication: GLAUCOMA
     Route: 047
  5. LATANOPROST [Concomitant]
     Indication: GLAUCOMA
     Route: 047

REACTIONS (2)
  - Eczema eyelids [Recovering/Resolving]
  - Injection site reaction [Recovering/Resolving]
